FAERS Safety Report 8874843 (Version 3)
Quarter: 2012Q4

REPORT INFORMATION
  Report Type: 
  Country: CN (occurrence: CN)
  Receive Date: 20121030
  Receipt Date: 20121130
  Transmission Date: 20130627
  Serious: Yes (Death)
  Sender: FDA-Public Use
  Company Number: CN-PFIZER INC-2012267809

PATIENT

DRUGS (4)
  1. FLUCONAZOLE [Suspect]
     Indication: PULMONARY CRYPTOCOCCOSIS
     Dosage: UNK
  2. SPORANOX [Suspect]
     Indication: PULMONARY CRYPTOCOCCOSIS
     Dosage: Unk
  3. AMPHOTERICIN B [Suspect]
     Indication: PULMONARY CRYPTOCOCCOSIS
     Dosage: unk
  4. FLUOROCYTOSINE [Suspect]
     Indication: PULMONARY CRYPTOCOCCOSIS
     Dosage: Unk

REACTIONS (1)
  - Death [Fatal]
